FAERS Safety Report 22258900 (Version 2)
Quarter: 2023Q2

REPORT INFORMATION
  Report Type: Report from Study
  Country: EG (occurrence: EG)
  Receive Date: 20230427
  Receipt Date: 20230508
  Transmission Date: 20230721
  Serious: Yes (Other)
  Sender: FDA-Public Use
  Company Number: EG-002147023-NVSC2023EG092817

PATIENT
  Age: 57 Year
  Sex: Male

DRUGS (1)
  1. COSENTYX [Suspect]
     Active Substance: SECUKINUMAB
     Indication: Ankylosing spondylitis
     Dosage: 1 DOSAGE FORM, QMO, AS A MAINTENANCE DOSE WITHOUT LOADING DOSE. (PATIENT PREVIOUS AND TO BE CONTINUE
     Route: 058
     Dates: start: 202204, end: 202210

REACTIONS (7)
  - Ankylosing spondylitis [Unknown]
  - Illness [Recovering/Resolving]
  - Laziness [Recovering/Resolving]
  - Tremor [Recovering/Resolving]
  - Nerve injury [Recovering/Resolving]
  - Fatigue [Unknown]
  - Incorrect dose administered [Unknown]

NARRATIVE: CASE EVENT DATE: 20220401
